FAERS Safety Report 17028625 (Version 1)
Quarter: 2019Q4

REPORT INFORMATION
  Report Type: Spontaneous
  Country: TW (occurrence: TW)
  Receive Date: 20191113
  Receipt Date: 20191113
  Transmission Date: 20200122
  Serious: Yes (Hospitalization, Other)
  Sender: FDA-Public Use
  Company Number: TW-BAXTER-2019BAX023017

PATIENT
  Age: 38 Year
  Sex: Female

DRUGS (6)
  1. VINCRISTINE [Suspect]
     Active Substance: VINCRISTINE
     Indication: PRECURSOR T-LYMPHOBLASTIC LEUKAEMIA ACUTE
     Dosage: HYPER- CVAD (CYCLICAL)
     Route: 042
  2. CYCLOPHOSPHAMIDE. [Suspect]
     Active Substance: CYCLOPHOSPHAMIDE
     Indication: PRECURSOR T-LYMPHOBLASTIC LEUKAEMIA ACUTE
     Dosage: HYPER-CVAD, CYCLICAL
     Route: 042
  3. DOXIL [Suspect]
     Active Substance: DOXORUBICIN HYDROCHLORIDE
     Indication: PRECURSOR T-LYMPHOBLASTIC LEUKAEMIA ACUTE
     Dosage: CYCLICAL (CYCLICAL)
     Route: 042
  4. PREDNISOLONE. [Suspect]
     Active Substance: PREDNISOLONE
     Indication: PRECURSOR T-LYMPHOBLASTIC LEUKAEMIA ACUTE
     Dosage: HYPER- CVAD (CYCLICAL)
     Route: 042
  5. CYTARABINE. [Suspect]
     Active Substance: CYTARABINE
     Indication: PRECURSOR T-LYMPHOBLASTIC LEUKAEMIA ACUTE
     Dosage: HYPER-CVAD, CYCLICAL
     Route: 042
  6. METHOTREXATE. [Suspect]
     Active Substance: METHOTREXATE
     Indication: PRECURSOR T-LYMPHOBLASTIC LEUKAEMIA ACUTE
     Dosage: CYCLICAL
     Route: 037

REACTIONS (3)
  - Intussusception [Recovered/Resolved]
  - Colitis [Recovered/Resolved]
  - Febrile neutropenia [Recovered/Resolved]
